FAERS Safety Report 15267529 (Version 4)
Quarter: 2019Q3

REPORT INFORMATION
  Report Type: Report from Study
  Country: US (occurrence: US)
  Receive Date: 20180811
  Receipt Date: 20190731
  Transmission Date: 20191004
  Serious: No
  Sender: FDA-Public Use
  Company Number: US-BRISTOL-MYERS SQUIBB COMPANY-BMS-2018-073090

PATIENT
  Sex: Female

DRUGS (2)
  1. ABATACEPT [Suspect]
     Active Substance: ABATACEPT
     Indication: RHEUMATOID ARTHRITIS
     Dosage: 125 MILLIGRAM, QWK
     Route: 058
  2. MELOXICAM. [Concomitant]
     Active Substance: MELOXICAM
     Indication: PRODUCT USED FOR UNKNOWN INDICATION
     Dosage: UNK
     Route: 065

REACTIONS (11)
  - Ear discomfort [Unknown]
  - Dry skin [Unknown]
  - Dry eye [Unknown]
  - Pain [Unknown]
  - Oral herpes [Unknown]
  - Visual impairment [Unknown]
  - Alopecia [Unknown]
  - Weight decreased [Unknown]
  - Condition aggravated [Unknown]
  - Influenza [Unknown]
  - Eye infection [Unknown]
